FAERS Safety Report 9081521 (Version 1)
Quarter: 2013Q1

REPORT INFORMATION
  Report Type: Spontaneous
  Country: US (occurrence: US)
  Receive Date: 20130218
  Receipt Date: 20130218
  Transmission Date: 20140127
  Serious: No
  Sender: FDA-Public Use
  Company Number: US-PFIZER INC-2013049807

PATIENT
  Age: 47 Year
  Sex: Female
  Weight: 56.69 kg

DRUGS (1)
  1. RELPAX [Suspect]
     Indication: MIGRAINE
     Dosage: 20 MG, 1X/DAY
     Dates: start: 20121216, end: 20121218

REACTIONS (1)
  - Rash [Recovered/Resolved]
